FAERS Safety Report 23079216 (Version 8)
Quarter: 2025Q3

REPORT INFORMATION
  Report Type: Report from Study
  Country: MY (occurrence: MY)
  Receive Date: 20231018
  Receipt Date: 20250714
  Transmission Date: 20251020
  Serious: Yes (Hospitalization, Other)
  Sender: TAKEDA
  Company Number: MY-TAKEDA-2023TUS088801

PATIENT
  Sex: Male

DRUGS (1)
  1. VEDOLIZUMAB [Suspect]
     Active Substance: VEDOLIZUMAB
     Indication: Crohn^s disease

REACTIONS (6)
  - Infected fistula [Unknown]
  - Urinary tract infection [Unknown]
  - Sepsis [Unknown]
  - Pneumonia [Unknown]
  - Fistula [Unknown]
  - Weight decreased [Recovering/Resolving]
